FAERS Safety Report 20081776 (Version 1)
Quarter: 2021Q4

REPORT INFORMATION
  Report Type: Spontaneous
  Country: US (occurrence: None)
  Receive Date: 20211117
  Receipt Date: 20211117
  Transmission Date: 20220303
  Serious: Yes (Death)
  Sender: FDA-Public Use
  Company Number: None

PATIENT
  Age: 63 Year
  Sex: Female

DRUGS (1)
  1. NEULASTA [Suspect]
     Active Substance: PEGFILGRASTIM
     Dosage: OTHER FREQUENCY : OTHER;?OTHER ROUTE : OTHER;?
     Route: 050
     Dates: start: 20211101

REACTIONS (1)
  - Death [None]

NARRATIVE: CASE EVENT DATE: 20211114
